FAERS Safety Report 16781507 (Version 1)
Quarter: 2019Q3

REPORT INFORMATION
  Report Type: Spontaneous
  Country: CA (occurrence: CA)
  Receive Date: 20190906
  Receipt Date: 20190906
  Transmission Date: 20191005
  Serious: Yes (Life-Threatening, Hospitalization)
  Sender: FDA-Public Use
  Company Number: CA-PFIZER INC-2019386313

PATIENT
  Age: 56 Year
  Sex: Female
  Weight: 77 kg

DRUGS (1)
  1. MINOXIDIL. [Suspect]
     Active Substance: MINOXIDIL
     Indication: ALOPECIA
     Dosage: UNK, 1X/DAY
     Route: 061

REACTIONS (6)
  - Hypersensitivity [Recovered/Resolved]
  - Product use in unapproved indication [Unknown]
  - Respiratory arrest [Recovered/Resolved]
  - Respiratory distress [Recovered/Resolved]
  - Product use issue [Unknown]
  - Off label use [Unknown]
